FAERS Safety Report 9375229 (Version 1)
Quarter: 2013Q2

REPORT INFORMATION
  Report Type: Spontaneous
  Country: US (occurrence: US)
  Receive Date: 20130628
  Receipt Date: 20130628
  Transmission Date: 20140414
  Serious: No
  Sender: FDA-Public Use
  Company Number: US-009507513-1306USA006984

PATIENT
  Sex: Female

DRUGS (6)
  1. VICTRELIS [Suspect]
     Indication: HEPATITIS C
     Dosage: 800 MG, TID
     Route: 048
     Dates: end: 20130506
  2. VICTRELIS [Suspect]
     Dosage: UNK
     Route: 048
  3. RIBAPAK [Suspect]
  4. PEGASYS [Suspect]
  5. VALIUM [Concomitant]
  6. LEXAPRO [Concomitant]

REACTIONS (3)
  - Blood pressure decreased [Unknown]
  - Red blood cell count decreased [Unknown]
  - Fatigue [Unknown]
